FAERS Safety Report 10269667 (Version 1)
Quarter: 2014Q2

REPORT INFORMATION
  Report Type: Spontaneous
  Country: IT (occurrence: None)
  Receive Date: 20140625
  Receipt Date: 20140625
  Transmission Date: 20141212
  Serious: Yes (Other)
  Sender: FDA-Public Use
  Company Number: 2014IT00610

PATIENT
  Age: 65 Year
  Sex: Female

DRUGS (9)
  1. GEMCITABINE (GEMCITABINE) INJECTION [Suspect]
     Indication: METASTATIC NEOPLASM
     Dosage: DAYS 1, 6, 15 EVERY 28 DAYS
     Dates: start: 201003, end: 201009
  2. PACLITAXEL [Suspect]
     Indication: METASTATIC NEOPLASM
  3. CISPLATIN [Concomitant]
  4. CYCLOPHOSPHAMIDE [Concomitant]
  5. DOXORUBICIN [Concomitant]
  6. INSULIN [Concomitant]
  7. ALDACTONE [Concomitant]
  8. DILATREND [Concomitant]
  9. CARDIOASPIRIN [Concomitant]

REACTIONS (16)
  - Capillary leak syndrome [None]
  - Pulmonary hypertension [None]
  - Dyspnoea [None]
  - Orthopnoea [None]
  - Cough [None]
  - Generalised oedema [None]
  - Blood creatinine increased [None]
  - Protein total decreased [None]
  - Pleural effusion [None]
  - Ascites [None]
  - Fibrin D dimer increased [None]
  - Blood lactate dehydrogenase increased [None]
  - Brain natriuretic peptide increased [None]
  - Renal failure [None]
  - Pulmonary oedema [None]
  - Acute respiratory distress syndrome [None]
